FAERS Safety Report 7193587-X (Version None)
Quarter: 2010Q4

REPORT INFORMATION
  Report Type: 
  Country: None (occurrence: None)
  Receive Date: 20101223
  Receipt Date: 20100907
  Transmission Date: 20110411
  Serious: No
  Sender: FDA-Public Use
  Company Number: US-AMGEN-KDL436526

PATIENT

DRUGS (7)
  1. ENBREL [Suspect]
     Indication: PRODUCT USED FOR UNKNOWN INDICATION
     Dosage: 50 MG, 2 TIMES/WK
     Route: 058
  2. AVALIDE [Concomitant]
     Dosage: UNK UNK, UNK
  3. LEVOTHYROXINE SODIUM [Concomitant]
     Dosage: 100 A?G, UNK
  4. ERGOCALCIFEROL [Concomitant]
     Dosage: 1000 IU, UNK
  5. CALCIUM/VITAMIN D [Concomitant]
     Dosage: UNK UNK, UNK
  6. MULTI-VITAMINS [Concomitant]
     Dosage: UNK UNK, UNK
  7. DESVENLAFAXINE [Concomitant]
     Dosage: 50 MG, UNK

REACTIONS (1)
  - EPISTAXIS [None]
